FAERS Safety Report 15859381 (Version 2)
Quarter: 2019Q3

REPORT INFORMATION
  Report Type: Spontaneous
  Country: US (occurrence: US)
  Receive Date: 20190123
  Receipt Date: 20190729
  Transmission Date: 20191004
  Serious: No
  Sender: FDA-Public Use
  Company Number: US-SA-2019SA018019

PATIENT
  Sex: Male

DRUGS (1)
  1. CEREZYME [Suspect]
     Active Substance: IMIGLUCERASE
     Indication: GAUCHER^S DISEASE
     Dosage: 5200 U, QOW
     Route: 041
     Dates: start: 20120112

REACTIONS (1)
  - Weight abnormal [Unknown]
